FAERS Safety Report 5294186-7 (Version None)
Quarter: 2007Q1

REPORT INFORMATION
  Report Type: 
  Country: None (occurrence: None)
  Receive Date: 20070116
  Receipt Date: 20060522
  Transmission Date: 20070707
  Serious: Yes (Other)
  Sender: FDA-Public Use
  Company Number: HQWYE507623MAY06

PATIENT
  Age: 57 Year
  Sex: Female

DRUGS (8)
  1. PREMPRO [Suspect]
     Indication: MENOPAUSAL SYMPTOMS
  2. COMBIPATCH [Suspect]
     Indication: MENOPAUSAL SYMPTOMS
  3. ESTRACE [Suspect]
     Indication: MENOPAUSAL SYMPTOMS
  4. ESTRADIOL [Suspect]
     Indication: MENOPAUSAL SYMPTOMS
  5. ESTRATEST [Suspect]
     Indication: MENOPAUSAL SYMPTOMS
  6. FEMHRT [Suspect]
     Indication: MENOPAUSAL SYMPTOMS
  7. MEDROXYPROGESTERONE [Suspect]
     Indication: MENOPAUSAL SYMPTOMS
  8. PROVERA [Suspect]
     Indication: MENOPAUSAL SYMPTOMS

REACTIONS (1)
  - BREAST CANCER [None]
